FAERS Safety Report 23617470 (Version 2)
Quarter: 2024Q1

REPORT INFORMATION
  Report Type: Spontaneous
  Country: US (occurrence: US)
  Receive Date: 20240311
  Receipt Date: 20240321
  Transmission Date: 20240409
  Serious: Yes (Other)
  Sender: FDA-Public Use
  Company Number: US-TEVA-VS-3165429

PATIENT
  Age: 63 Year
  Sex: Male

DRUGS (5)
  1. SPIRONOLACTONE [Suspect]
     Active Substance: SPIRONOLACTONE
     Indication: Left ventricular failure
     Route: 065
  2. TIRZEPATIDE [Suspect]
     Active Substance: TIRZEPATIDE
     Indication: Type 2 diabetes mellitus
     Route: 065
  3. TIRZEPATIDE [Suspect]
     Active Substance: TIRZEPATIDE
     Indication: Type 2 diabetes mellitus
     Dosage: GRADUALLY TITRATED TO 12.5MG ONCE WEEKLY
     Route: 065
  4. SACUBITRIL\VALSARTAN [Suspect]
     Active Substance: SACUBITRIL\VALSARTAN
     Indication: Left ventricular failure
     Route: 065
  5. CARVEDILOL [Suspect]
     Active Substance: CARVEDILOL
     Indication: Left ventricular failure
     Route: 065

REACTIONS (5)
  - Drug interaction [Recovered/Resolved]
  - Hypotension [Recovered/Resolved]
  - Renal ischaemia [Unknown]
  - Orthostatic hypotension [Recovering/Resolving]
  - Presyncope [Unknown]
